FAERS Safety Report 5798836-8 (Version None)
Quarter: 2008Q2

REPORT INFORMATION
  Report Type: 
  Country: None (occurrence: None)
  Receive Date: 20080630
  Receipt Date: 20080619
  Transmission Date: 20081010
  Serious: Yes (Other)
  Sender: FDA-Public Use
  Company Number: 2008AP000277

PATIENT
  Age: 43 Year
  Sex: Female

DRUGS (6)
  1. PAROXETINE HCL [Suspect]
     Dates: start: 20000202
  2. BUPROPION HYDROCHLORIDE [Concomitant]
  3. CITALOPRAM HYDROBROMIDE [Concomitant]
  4. AMFEBUTAMONE (BUPROPION) [Concomitant]
  5. ESTRADIOL [Concomitant]
  6. ORLISTAT (ORLISTAT) [Concomitant]

REACTIONS (7)
  - FIBROMYALGIA [None]
  - OBESITY [None]
  - PAROSMIA [None]
  - SCIATICA [None]
  - SPINAL DISORDER [None]
  - SUICIDAL IDEATION [None]
  - WITHDRAWAL SYNDROME [None]
